FAERS Safety Report 26076799 (Version 1)
Quarter: 2025Q4

REPORT INFORMATION
  Report Type: Spontaneous
  Country: CN (occurrence: CN)
  Receive Date: 20251121
  Receipt Date: 20251121
  Transmission Date: 20260117
  Serious: Yes (Hospitalization, Other)
  Sender: ELI LILLY AND COMPANY
  Company Number: CN-Merck Healthcare KGaA-2025057797

PATIENT
  Age: 35 Year
  Sex: Female
  Weight: 60 kg

DRUGS (9)
  1. ERBITUX [Suspect]
     Active Substance: CETUXIMAB
     Indication: Adenocarcinoma of colon
     Dosage: 700 MG, UNKNOWN
     Route: 041
     Dates: start: 20250819, end: 20250819
  2. ERBITUX [Suspect]
     Active Substance: CETUXIMAB
     Dosage: UNK UNK, UNKNOWN
     Route: 065
  3. OXALIPLATIN [Suspect]
     Active Substance: OXALIPLATIN
     Indication: Adenocarcinoma of colon
     Dosage: 220 MG, DAILY
     Route: 041
     Dates: start: 20250808, end: 20250818
  4. OXALIPLATIN [Suspect]
     Active Substance: OXALIPLATIN
     Dosage: UNK UNK, UNKNOWN
     Route: 065
  5. CAPECITABINE [Suspect]
     Active Substance: CAPECITABINE
     Indication: Adenocarcinoma of colon
     Dosage: 1.5 G, UNKNOWN
     Route: 048
     Dates: start: 20250818, end: 20250901
  6. CAPECITABINE [Suspect]
     Active Substance: CAPECITABINE
     Dosage: UNK UNK, UNKNOWN
     Route: 065
  7. IPAROMLIMAB\TUVONRALIMAB [Suspect]
     Active Substance: IPAROMLIMAB\TUVONRALIMAB
     Indication: Adenocarcinoma of colon
     Dosage: 300 MG, DAILY
     Route: 041
     Dates: start: 20250819, end: 20250819
  8. IPAROMLIMAB\TUVONRALIMAB [Suspect]
     Active Substance: IPAROMLIMAB\TUVONRALIMAB
     Dosage: UNK UNK, UNKNOWN
     Route: 065
  9. SODIUM CHLORIDE [Concomitant]
     Active Substance: SODIUM CHLORIDE
     Indication: Medication dilution
     Dosage: 100 ML, DAILY
     Route: 041
     Dates: start: 20250818, end: 20250819

REACTIONS (2)
  - Papule [Recovering/Resolving]
  - Transaminases increased [Recovering/Resolving]

NARRATIVE: CASE EVENT DATE: 20250903
